FAERS Safety Report 8240000-7 (Version None)
Quarter: 2012Q1

REPORT INFORMATION
  Report Type: 
  Country: None (occurrence: None)
  Receive Date: 20120328
  Receipt Date: 20120319
  Transmission Date: 20120608
  Serious: Yes (Hospitalization, Other)
  Sender: FDA-Public Use
  Company Number: US-BAYER-2011-107469

PATIENT
  Age: 32 Year
  Sex: Female
  Weight: 65.76 kg

DRUGS (6)
  1. ACETAMINOPHEN [Concomitant]
     Indication: PAIN
     Dosage: UNK UNK, PRN
     Route: 048
  2. METFORMIN HCL [Concomitant]
     Indication: BLOOD GLUCOSE DECREASED
     Route: 048
  3. IBUPROFEN (ADVIL) [Concomitant]
     Indication: PAIN
     Dosage: UNK UNK, PRN
     Route: 048
  4. SPIRONOLACTONE [Concomitant]
     Indication: SEBORRHOEA
     Dosage: UNK
     Route: 048
     Dates: start: 20050101, end: 20070101
  5. MINOCIN [Concomitant]
     Indication: ACNE
     Dosage: UNK
     Route: 048
     Dates: start: 20050101, end: 20070101
  6. YASMIN [Suspect]
     Dosage: UNK
     Route: 048
     Dates: start: 20060501, end: 20060801

REACTIONS (17)
  - EMOTIONAL DISTRESS [None]
  - BLOOD TESTOSTERONE INCREASED [None]
  - PULMONARY EMBOLISM [None]
  - PREMENSTRUAL SYNDROME [None]
  - ATELECTASIS [None]
  - ABSCESS [None]
  - ANXIETY [None]
  - FEAR [None]
  - MENTAL DISORDER [None]
  - PLEURAL EFFUSION [None]
  - DYSPNOEA [None]
  - PULMONARY INFARCTION [None]
  - POST-TRAUMATIC STRESS DISORDER [None]
  - PAIN [None]
  - OROPHARYNGEAL PAIN [None]
  - PNEUMONIA [None]
  - MEMORY IMPAIRMENT [None]
